FAERS Safety Report 19719180 (Version 2)
Quarter: 2021Q3

REPORT INFORMATION
  Report Type: Spontaneous
  Country: US (occurrence: US)
  Receive Date: 20210819
  Receipt Date: 20210826
  Transmission Date: 20211014
  Serious: No
  Sender: FDA-Public Use
  Company Number: US-MYLANLABS-2021M1051714

PATIENT
  Sex: Female

DRUGS (2)
  1. MESALAMINE. [Concomitant]
     Active Substance: MESALAMINE
     Indication: COLITIS ULCERATIVE
     Dosage: 2 DOSAGE FORM, QD
     Route: 048
  2. ROWASA [Suspect]
     Active Substance: MESALAMINE
     Indication: COLITIS ULCERATIVE
     Dosage: QD,ONE BOTTLE RECTALLY EVERY NIGHT
     Route: 054
     Dates: start: 20210810

REACTIONS (3)
  - Product colour issue [Unknown]
  - Bowel movement irregularity [Unknown]
  - Product quality issue [Unknown]
